FAERS Safety Report 7875897-3 (Version None)
Quarter: 2011Q4

REPORT INFORMATION
  Report Type: 
  Country: None (occurrence: None)
  Receive Date: 20111031
  Receipt Date: 20111021
  Transmission Date: 20120403
  Serious: Yes (Other)
  Sender: FDA-Public Use
  Company Number: GB-ASTRAZENECA-2011SE63811

PATIENT
  Age: 46 Year
  Sex: Female

DRUGS (24)
  1. MEROPENEM [Suspect]
     Route: 042
     Dates: start: 20110905, end: 20110910
  2. VANCOMYCIN [Suspect]
     Dates: start: 20110904, end: 20110909
  3. ETOPOSIDE [Suspect]
     Indication: ACUTE MYELOID LEUKAEMIA
     Dates: start: 20110819, end: 20110828
  4. ALLOPURINOL [Concomitant]
     Dates: start: 20110828, end: 20110908
  5. ONDANSETRON [Concomitant]
     Dates: start: 20110822, end: 20110828
  6. GEMTUZUMAB OZOGAMICIN [Suspect]
     Indication: ACUTE MYELOID LEUKAEMIA
     Dates: start: 20110819, end: 20110828
  7. ETOPOSIDE [Suspect]
     Indication: MYELODYSPLASTIC SYNDROME
     Dates: start: 20110819, end: 20110828
  8. DAUNORUBICIN HCL [Suspect]
     Indication: MYELODYSPLASTIC SYNDROME
     Dates: start: 20110819, end: 20110828
  9. NORETHISTERONE [Suspect]
     Dates: start: 20110818
  10. CODEINE SULFATE [Concomitant]
     Dates: start: 20110817, end: 20110820
  11. ACYCLOVIR [Concomitant]
  12. TRANEXAMIC ACID [Concomitant]
     Dates: start: 20110831, end: 20110908
  13. ACETAMINOPHEN [Concomitant]
     Dates: start: 20110817, end: 20110828
  14. CYCLIZINE [Concomitant]
     Dates: start: 20110903, end: 20110914
  15. ANTI-D IMMUNOGLOBULIN [Concomitant]
     Dates: start: 20110902, end: 20110902
  16. ORAMORPH SR [Concomitant]
     Dates: start: 20110822, end: 20110823
  17. CYTARABINE [Suspect]
     Indication: MYELODYSPLASTIC SYNDROME
     Dates: start: 20110819, end: 20110828
  18. PIPERACILLIN AND TAZOBACTAM [Suspect]
     Route: 042
     Dates: start: 20110822, end: 20110825
  19. DOCUSATE SODIUM [Concomitant]
     Dates: start: 20110823, end: 20110914
  20. GEMTUZUMAB OZOGAMICIN [Suspect]
     Indication: MYELODYSPLASTIC SYNDROME
     Dates: start: 20110819, end: 20110828
  21. CYTARABINE [Suspect]
     Indication: ACUTE MYELOID LEUKAEMIA
     Dates: start: 20110819, end: 20110828
  22. DAUNORUBICIN HCL [Suspect]
     Indication: ACUTE MYELOID LEUKAEMIA
     Dates: start: 20110819, end: 20110828
  23. AMBISOME [Suspect]
     Route: 042
     Dates: start: 20110831, end: 20110831
  24. LORAZEPAM [Concomitant]
     Dates: start: 20110914, end: 20110914

REACTIONS (2)
  - ALANINE AMINOTRANSFERASE INCREASED [None]
  - PLATELET COUNT DECREASED [None]
